FAERS Safety Report 7130501-7 (Version None)
Quarter: 2010Q4

REPORT INFORMATION
  Report Type: 
  Country: None (occurrence: None)
  Receive Date: 20101201
  Receipt Date: 20101123
  Transmission Date: 20110411
  Serious: Yes (Other)
  Sender: FDA-Public Use
  Company Number: FR-BRISTOL-MYERS SQUIBB COMPANY-15406564

PATIENT
  Sex: Male

DRUGS (9)
  1. COUMADIN [Suspect]
  2. TRIATEC [Interacting]
     Indication: HYPERTENSION
     Dosage: ADMINISTERED FROM PAST 10 YEARS.
  3. SECTRAL [Interacting]
     Indication: HYPERTENSION
     Dosage: ADMINISTERED FROM PAST 10 YEARS.
  4. PHYSIOTENS [Interacting]
     Indication: HYPERTENSION
     Dosage: ADMINISTERED FROM PAST 10 YEARS.
  5. RASILEZ HCT [Interacting]
     Indication: HYPERTENSION
     Dosage: ADMINISTERED FROM PAST 10 YEARS.
  6. NITRODERM [Interacting]
  7. PARIET [Interacting]
  8. FLECAINIDE ACETATE [Interacting]
     Dosage: 1 DF=200 PROLONGED RELEASE
  9. LESCOL [Interacting]
     Indication: HYPERCHOLESTEROLAEMIA

REACTIONS (5)
  - DRUG INTERACTION [None]
  - ERYSIPELAS [None]
  - LYMPHOEDEMA [None]
  - TOXIC SKIN ERUPTION [None]
  - VARICOSE ULCERATION [None]
